FAERS Safety Report 5641911-9 (Version None)
Quarter: 2008Q1

REPORT INFORMATION
  Report Type: 
  Country: None (occurrence: None)
  Receive Date: 20080131
  Receipt Date: 20071129
  Transmission Date: 20080703
  Serious: Yes (Hospitalization, Other)
  Sender: FDA-Public Use
  Company Number: 163-21880-07101597

PATIENT
  Age: 62 Year
  Sex: Female

DRUGS (4)
  1. REVLIMID [Suspect]
     Indication: MULTIPLE MYELOMA
     Dosage: 25 MG, DAILY FOR 21 DAYS, ORAL
     Route: 048
     Dates: start: 20070901, end: 20070901
  2. REVLIMID [Suspect]
     Dosage: 20 MG, DAILY FOR 21 DAYS, ORAL ; 10 MG, DAILY FOR 21 DAYS, ORAL
     Route: 048
     Dates: start: 20071001, end: 20071101
  3. REVLIMID [Suspect]
     Dosage: 20 MG, DAILY FOR 21 DAYS, ORAL ; 10 MG, DAILY FOR 21 DAYS, ORAL
     Route: 048
     Dates: start: 20071101
  4. ARANESP [Concomitant]

REACTIONS (7)
  - ANAEMIA [None]
  - BLOOD CALCIUM INCREASED [None]
  - HAEMATOCRIT DECREASED [None]
  - HAEMOGLOBIN DECREASED [None]
  - PLATELET COUNT DECREASED [None]
  - RED BLOOD CELL COUNT DECREASED [None]
  - WHITE BLOOD CELL COUNT DECREASED [None]
